FAERS Safety Report 20463093 (Version 1)
Quarter: 2022Q1

REPORT INFORMATION
  Report Type: Report from Study
  Country: BR (occurrence: BR)
  Receive Date: 20220211
  Receipt Date: 20220211
  Transmission Date: 20220423
  Serious: Yes (Hospitalization, Other)
  Sender: FDA-Public Use
  Company Number: BR-BIOGEN-2022BI01094294

PATIENT
  Age: 0 Year
  Sex: Female
  Weight: 7 kg

DRUGS (3)
  1. SPINRAZA [Suspect]
     Active Substance: NUSINERSEN
     Indication: Spinal muscular atrophy
     Route: 037
     Dates: start: 20211029, end: 20211112
  2. PURAVIT VITAMIN-MINERAL SUPPLEMENT [Concomitant]
     Indication: Vitamin supplementation
     Route: 048
     Dates: start: 202107
  3. ULTRAFER (FERRIPOLYMALTOSE) [Concomitant]
     Indication: Vitamin supplementation
     Route: 048
     Dates: start: 202107

REACTIONS (7)
  - Aspiration [Recovered/Resolved]
  - Pneumonia aspiration [Recovered/Resolved]
  - Cardiac arrest [Recovered/Resolved]
  - Seizure [Recovered/Resolved]
  - Increased bronchial secretion [Recovered/Resolved]
  - Dysphagia [Recovered/Resolved]
  - Poor feeding infant [Unknown]

NARRATIVE: CASE EVENT DATE: 20211103
